FAERS Safety Report 7534173-9 (Version None)
Quarter: 2011Q2

REPORT INFORMATION
  Report Type: 
  Country: None (occurrence: None)
  Receive Date: 20110608
  Receipt Date: 20061109
  Transmission Date: 20111010
  Serious: Yes (Death)
  Sender: FDA-Public Use
  Company Number: PHFR2006GB03320

PATIENT
  Sex: Female

DRUGS (1)
  1. CLOZAPINE [Suspect]
     Indication: SHARED PSYCHOTIC DISORDER
     Route: 048
     Dates: start: 20060713

REACTIONS (2)
  - ABASIA [None]
  - COMPLETED SUICIDE [None]
